FAERS Safety Report 17325539 (Version 6)
Quarter: 2020Q2

REPORT INFORMATION
  Report Type: Report from Study
  Country: US (occurrence: US)
  Receive Date: 20200127
  Receipt Date: 20200616
  Transmission Date: 20200713
  Serious: Yes (Other)
  Sender: FDA-Public Use
  Company Number: US-PFIZER INC-2020037087

PATIENT
  Age: 78 Year
  Sex: Female

DRUGS (3)
  1. IBRANCE [Suspect]
     Active Substance: PALBOCICLIB
     Indication: BREAST CANCER FEMALE
     Dosage: 125 MG, UNK
     Route: 048
  2. LETROZOLE. [Concomitant]
     Active Substance: LETROZOLE
     Dosage: UNK
  3. IBRANCE [Suspect]
     Active Substance: PALBOCICLIB
     Dosage: 100 MG, CYCLIC (DAILY DAY 1-21 OF 28 DAY CYCLE/ 21 DAYS ON, 7 DAYS OFF)
     Route: 048
     Dates: start: 20200116

REACTIONS (6)
  - Headache [Recovered/Resolved]
  - Blood iron decreased [Unknown]
  - Sputum discoloured [Unknown]
  - Cough [Not Recovered/Not Resolved]
  - Laboratory test abnormal [Unknown]
  - Fatigue [Recovered/Resolved]

NARRATIVE: CASE EVENT DATE: 2020
